FAERS Safety Report 24045244 (Version 4)
Quarter: 2024Q3

REPORT INFORMATION
  Report Type: Spontaneous
  Country: US (occurrence: US)
  Receive Date: 20240703
  Receipt Date: 20240829
  Transmission Date: 20241017
  Serious: Yes (Hospitalization, Other)
  Sender: AMGEN
  Company Number: US-AMGEN-USASP2024127518

PATIENT
  Age: 44 Year
  Sex: Male

DRUGS (9)
  1. PROCYSBI [Suspect]
     Active Substance: CYSTEAMINE BITARTRATE
     Indication: Cystinosis
     Dosage: 1350 MILLIGRAM, BID (18 CAPSULES)
     Route: 048
  2. PROCYSBI [Suspect]
     Active Substance: CYSTEAMINE BITARTRATE
     Dosage: 1350 MILLIGRAM, BID (18 CAPSULES)
     Route: 048
  3. PREDNISONE [Suspect]
     Active Substance: PREDNISONE
     Indication: Product used for unknown indication
     Dosage: 1 MILLIGRAM
     Route: 065
  4. FENTANYL [Concomitant]
     Active Substance: FENTANYL\FENTANYL CITRATE
     Dosage: UNK
  5. CELLCEPT [Concomitant]
     Active Substance: MYCOPHENOLATE MOFETIL
     Dosage: 200 MILLIGRAM PER MILLILITRE (SUSP RECON)
  6. SYNTHROID [Concomitant]
     Active Substance: LEVOTHYROXINE SODIUM
     Dosage: 100 MICROGRAM
  7. PROGRAF [Concomitant]
     Active Substance: TACROLIMUS
     Dosage: 0.2 MILLIGRAM (GRAN PACK)
  8. ALLOPURINOL [Concomitant]
     Active Substance: ALLOPURINOL
     Dosage: 100 MILLIGRAM
  9. ASPIRIN [Concomitant]
     Active Substance: ASPIRIN
     Dosage: UNK, (POWDER PERCENT)

REACTIONS (7)
  - Unevaluable event [Unknown]
  - Loss of consciousness [Unknown]
  - Abdominal distension [Unknown]
  - Head injury [Unknown]
  - Concussion [Unknown]
  - Abdominal pain upper [Unknown]
  - Illness [Unknown]

NARRATIVE: CASE EVENT DATE: 20240101
